FAERS Safety Report 7244482-9 (Version None)
Quarter: 2011Q1

REPORT INFORMATION
  Report Type: 
  Country: None (occurrence: None)
  Receive Date: 20110125
  Receipt Date: 20110113
  Transmission Date: 20110831
  Serious: Yes (Hospitalization)
  Sender: FDA-Public Use
  Company Number: US-ASTRAZENECA-2010SE59294

PATIENT
  Sex: Female

DRUGS (1)
  1. CRESTOR [Suspect]
     Route: 048

REACTIONS (6)
  - COUGH [None]
  - HIP ARTHROPLASTY [None]
  - NASOPHARYNGITIS [None]
  - BRONCHITIS [None]
  - ABNORMAL SENSATION IN EYE [None]
  - VOMITING [None]
